FAERS Safety Report 12294896 (Version 2)
Quarter: 2016Q2

REPORT INFORMATION
  Report Type: Spontaneous
  Country: FR (occurrence: FR)
  Receive Date: 20160422
  Receipt Date: 20160503
  Transmission Date: 20160815
  Serious: Yes (Other)
  Sender: FDA-Public Use
  Company Number: PHHY2016FR053910

PATIENT
  Age: 93 Year
  Sex: Female

DRUGS (8)
  1. TEGRETOL LP [Suspect]
     Active Substance: CARBAMAZEPINE
     Indication: PRODUCT USED FOR UNKNOWN INDICATION
     Dosage: 200 MG, ONCE/SINGLE
     Route: 048
     Dates: start: 20160326, end: 20160326
  2. NOZINAN//LEVOMEPROMAZINE MALEATE [Suspect]
     Active Substance: LEVOMEPROMAZINE
     Indication: PRODUCT USED FOR UNKNOWN INDICATION
     Dosage: 25 MG, ONCE/SINGLE
     Route: 048
     Dates: start: 20160326, end: 20160326
  3. THEOSTAT [Suspect]
     Active Substance: THEOPHYLLINE ANHYDROUS
     Indication: PRODUCT USED FOR UNKNOWN INDICATION
     Dosage: 100 MG, ONCE/SINGLE
     Route: 048
     Dates: start: 20160326, end: 20160326
  4. LASILIX [Suspect]
     Active Substance: FUROSEMIDE
     Indication: PRODUCT USED FOR UNKNOWN INDICATION
     Dosage: 40 MG, ONCE/SINGLE
     Route: 048
     Dates: start: 20160326, end: 20160326
  5. KALEORID [Suspect]
     Active Substance: POTASSIUM CHLORIDE
     Indication: PRODUCT USED FOR UNKNOWN INDICATION
     Dosage: 600 MG, ONCE/SINGLE
     Route: 048
     Dates: start: 20160326, end: 20160326
  6. LYSANXIA [Suspect]
     Active Substance: PRAZEPAM
     Indication: PRODUCT USED FOR UNKNOWN INDICATION
     Dosage: 10 MG, ONCE/SINGLE
     Route: 048
     Dates: start: 20160326, end: 20160326
  7. EFFEXOR [Suspect]
     Active Substance: VENLAFAXINE HYDROCHLORIDE
     Indication: PRODUCT USED FOR UNKNOWN INDICATION
     Dosage: 75 MG, ONCE/SINGLE
     Route: 048
     Dates: start: 20160326, end: 20160326
  8. ISOPTINE [Suspect]
     Active Substance: VERAPAMIL HYDROCHLORIDE
     Indication: PRODUCT USED FOR UNKNOWN INDICATION
     Dosage: 240 MG, ONCE/SINGLE
     Route: 048
     Dates: start: 20160326, end: 20160326

REACTIONS (4)
  - Medication error [Recovered/Resolved]
  - Wrong patient received medication [Recovered/Resolved]
  - Blood creatinine increased [Recovered/Resolved]
  - Somnolence [Recovered/Resolved]

NARRATIVE: CASE EVENT DATE: 20160326
